FAERS Safety Report 16219059 (Version 4)
Quarter: 2019Q4

REPORT INFORMATION
  Report Type: Report from Study
  Country: US (occurrence: US)
  Receive Date: 20190419
  Receipt Date: 20191105
  Transmission Date: 20200122
  Serious: Yes (Hospitalization, Other)
  Sender: FDA-Public Use
  Company Number: PHEH2019US016247

PATIENT
  Sex: Female

DRUGS (1)
  1. GLEEVEC [Suspect]
     Active Substance: IMATINIB MESYLATE
     Indication: LEUKAEMIA
     Dosage: UNK
     Route: 065

REACTIONS (7)
  - Apoptosis [Unknown]
  - Pyrexia [Unknown]
  - Malignant neoplasm progression [Recovering/Resolving]
  - Immune system disorder [Unknown]
  - Sinusitis [Unknown]
  - Leukaemia [Recovering/Resolving]
  - Drug intolerance [Unknown]
